FAERS Safety Report 10150211 (Version 1)
Quarter: 2014Q2

REPORT INFORMATION
  Report Type: Spontaneous
  Country: US (occurrence: US)
  Receive Date: 20140502
  Receipt Date: 20140502
  Transmission Date: 20141212
  Serious: Yes (Hospitalization)
  Sender: FDA-Public Use
  Company Number: US-ASTRAZENECA-2014SE28811

PATIENT
  Age: 610 Month
  Sex: Male

DRUGS (5)
  1. SYMBICORT  PMDI [Suspect]
     Dosage: 160MCG BID
     Route: 055
  2. CARVEDILOL [Concomitant]
     Route: 048
  3. FUROSEMIDE [Concomitant]
     Route: 048
  4. PROAIR [Concomitant]
     Dosage: 2 PUFFS Q 4HRS PRN
     Route: 055
  5. LOSARTAN [Concomitant]
     Route: 048

REACTIONS (1)
  - Staphylococcal infection [Unknown]
